FAERS Safety Report 6582545-1 (Version None)
Quarter: 2010Q1

REPORT INFORMATION
  Report Type: 
  Country: None (occurrence: None)
  Receive Date: 20100216
  Receipt Date: 20100209
  Transmission Date: 20100710
  Serious: Yes (Hospitalization)
  Sender: FDA-Public Use
  Company Number: NL-ASTRAZENECA-2010SE05821

PATIENT
  Age: 73 Year
  Sex: Female
  Weight: 70 kg

DRUGS (1)
  1. SEROQUEL [Suspect]
     Indication: BIPOLAR DISORDER
     Route: 048
     Dates: start: 20091023, end: 20091024

REACTIONS (4)
  - BRADYCARDIA [None]
  - EXTRAPYRAMIDAL DISORDER [None]
  - HYPOTHERMIA [None]
  - SWOLLEN TONGUE [None]
